FAERS Safety Report 4865782-3 (Version None)
Quarter: 2005Q4

REPORT INFORMATION
  Report Type: 
  Country: None (occurrence: None)
  Receive Date: 20051220
  Receipt Date: 20051209
  Transmission Date: 20060501
  Serious: Yes (Hospitalization, Other)
  Sender: FDA-Public Use
  Company Number: 2005166981

PATIENT
  Age: 75 Year
  Sex: Male

DRUGS (6)
  1. LIPITOR [Suspect]
     Indication: ILL-DEFINED DISORDER
     Dosage: 10 MG (10 MG, 1 IN 1 D), ORAL
     Route: 048
     Dates: start: 20050101
  2. IODINE (IODINE) [Suspect]
     Indication: COMPUTERISED TOMOGRAM
     Dates: start: 20051101, end: 20051101
  3. ALL OTHER THERAPEUTIC PRODUCTS (ALL OTHER THERAPEUTIC PRODUCTS) [Suspect]
     Indication: ILL-DEFINED DISORDER
  4. IRBESARTAN [Concomitant]
  5. NIFEDIPINE [Concomitant]
  6. LEVOTHYROXINE SODIUM [Concomitant]

REACTIONS (6)
  - BACK PAIN [None]
  - CARDIAC TAMPONADE [None]
  - CONSTIPATION [None]
  - DISCOMFORT [None]
  - HYPERSENSITIVITY [None]
  - VIRAL PERICARDITIS [None]
